FAERS Safety Report 4301091-9 (Version None)
Quarter: 2004Q1

REPORT INFORMATION
  Report Type: 
  Country: None (occurrence: None)
  Receive Date: 20040218
  Receipt Date: 20040211
  Transmission Date: 20041129
  Serious: Yes (Other)
  Sender: FDA-Public Use
  Company Number: 2003192028US

PATIENT
  Age: 36 Year
  Sex: Female
  Weight: 81.6 kg

DRUGS (2)
  1. DEPO-PROVERA [Suspect]
     Dosage: 1ST INJECTION
     Dates: start: 20030301, end: 20030301
  2. DEPO-PROVERA [Suspect]
     Dosage: 1ST INJECTION
     Dates: start: 20030601, end: 20030601

REACTIONS (6)
  - BREAST TENDERNESS [None]
  - DEPRESSION [None]
  - MAJOR DEPRESSION [None]
  - MENORRHAGIA [None]
  - UTERINE LEIOMYOMA [None]
  - VITAMIN B12 DEFICIENCY [None]
